FAERS Safety Report 20727602 (Version 1)
Quarter: 2022Q2

REPORT INFORMATION
  Report Type: Spontaneous
  Country: US (occurrence: None)
  Receive Date: 20220419
  Receipt Date: 20220419
  Transmission Date: 20220720
  Serious: No
  Sender: FDA-Public Use
  Company Number: US-ROCHE-2932938

PATIENT
  Age: 85 Year
  Sex: Female

DRUGS (14)
  1. AVASTIN [Suspect]
     Active Substance: BEVACIZUMAB
     Indication: Product used for unknown indication
     Route: 065
  2. LONSURF [Suspect]
     Active Substance: TIPIRACIL HYDROCHLORIDE\TRIFLURIDINE
     Indication: Colon cancer
     Route: 048
     Dates: start: 20210730
  3. LONSURF [Suspect]
     Active Substance: TIPIRACIL HYDROCHLORIDE\TRIFLURIDINE
     Dosage: CYCLE 1
     Route: 048
     Dates: start: 20210711
  4. LONSURF [Suspect]
     Active Substance: TIPIRACIL HYDROCHLORIDE\TRIFLURIDINE
     Dosage: CYCLE 2
     Route: 048
     Dates: start: 20210816
  5. LONSURF [Suspect]
     Active Substance: TIPIRACIL HYDROCHLORIDE\TRIFLURIDINE
     Dosage: CYCLE 3
     Route: 048
     Dates: start: 20210920
  6. BIOTIN [Concomitant]
     Active Substance: BIOTIN
  7. GABAPENTIN [Concomitant]
     Active Substance: GABAPENTIN
  8. HYDROCHLOROTHIAZIDE [Concomitant]
     Active Substance: HYDROCHLOROTHIAZIDE
  9. IMODIUM [Concomitant]
     Active Substance: LOPERAMIDE HYDROCHLORIDE
  10. LIDOCAINE [Concomitant]
     Active Substance: LIDOCAINE
  11. MIRALAX [Concomitant]
     Active Substance: POLYETHYLENE GLYCOL 3350
  12. POTASSIUM [Concomitant]
     Active Substance: POTASSIUM
  13. PROTONIX [Concomitant]
     Active Substance: PANTOPRAZOLE SODIUM
  14. ZOFRAN [Concomitant]
     Active Substance: ONDANSETRON HYDROCHLORIDE

REACTIONS (3)
  - Vomiting [Recovered/Resolved]
  - Disease progression [Unknown]
  - Dysphonia [Not Recovered/Not Resolved]

NARRATIVE: CASE EVENT DATE: 20210816
